FAERS Safety Report 7002869-3 (Version None)
Quarter: 2010Q3

REPORT INFORMATION
  Report Type: 
  Country: None (occurrence: None)
  Receive Date: 20100920
  Receipt Date: 20100915
  Transmission Date: 20110219
  Serious: Yes (Death)
  Sender: FDA-Public Use
  Company Number: GB-ABBOTT-10P-167-0670821-00

PATIENT
  Sex: Male
  Weight: 127 kg

DRUGS (1)
  1. HUMIRA [Suspect]
     Indication: RHEUMATOID ARTHRITIS
     Route: 058
     Dates: start: 20070803, end: 20080516

REACTIONS (3)
  - MYOCARDIAL ISCHAEMIA [None]
  - PNEUMONIA [None]
  - RENAL FAILURE CHRONIC [None]
